FAERS Safety Report 25951446 (Version 2)
Quarter: 2025Q4

REPORT INFORMATION
  Report Type: Report from Study
  Country: CL (occurrence: CL)
  Receive Date: 20251023
  Receipt Date: 20251124
  Transmission Date: 20260118
  Serious: Yes (Other)
  Sender: NOVARTIS
  Company Number: CL-002147023-NVSC2025CL112932

PATIENT
  Age: 67 Year
  Sex: Female

DRUGS (3)
  1. KISQALI [Suspect]
     Active Substance: RIBOCICLIB SUCCINATE
     Indication: Breast cancer
     Dosage: 600 MG (200 MG), QD
     Route: 048
     Dates: start: 20250520
  2. KISQALI [Suspect]
     Active Substance: RIBOCICLIB SUCCINATE
     Dosage: 400 MG, QD
     Route: 048
  3. AROMASIN [Suspect]
     Active Substance: EXEMESTANE
     Indication: Product used for unknown indication
     Dosage: UNK
     Route: 065

REACTIONS (9)
  - Lung neoplasm malignant [Unknown]
  - Cardiac dysfunction [Unknown]
  - Limb discomfort [Unknown]
  - Gait disturbance [Unknown]
  - Peripheral swelling [Unknown]
  - Somnolence [Unknown]
  - Rhinorrhoea [Unknown]
  - Cough [Recovering/Resolving]
  - Malaise [Unknown]
